FAERS Safety Report 9978676 (Version 1)
Quarter: 2014Q1

REPORT INFORMATION
  Report Type: Report from Study
  Country: US (occurrence: US)
  Receive Date: 20140306
  Receipt Date: 20140306
  Transmission Date: 20141002
  Serious: No
  Sender: FDA-Public Use
  Company Number: US-ABBVIE-13P-163-1173526-00

PATIENT
  Age: 71 Year
  Sex: Female

DRUGS (9)
  1. HUMIRA [Suspect]
     Indication: CROHN^S DISEASE
     Dates: start: 20131031, end: 20131031
  2. HUMIRA [Suspect]
     Dates: start: 20131114, end: 20131114
  3. HUMIRA [Suspect]
  4. ASACOL [Concomitant]
     Indication: CROHN^S DISEASE
  5. SYNTHROID [Concomitant]
     Indication: HYPOTHYROIDISM
  6. WELCHOL [Concomitant]
     Indication: ABDOMINAL PAIN
  7. WELCHOL [Concomitant]
     Indication: BLOOD CHOLESTEROL INCREASED
  8. FIORINAL [Concomitant]
     Indication: MIGRAINE
  9. PROLIA [Concomitant]
     Indication: OSTEOPOROSIS

REACTIONS (5)
  - Drug dose omission [Not Recovered/Not Resolved]
  - Crohn^s disease [Not Recovered/Not Resolved]
  - Injection site pain [Not Recovered/Not Resolved]
  - Device malfunction [Not Recovered/Not Resolved]
  - Drug ineffective [Not Recovered/Not Resolved]
